FAERS Safety Report 24964392 (Version 1)
Quarter: 2025Q1

REPORT INFORMATION
  Report Type: Spontaneous
  Country: NZ (occurrence: NZ)
  Receive Date: 20250213
  Receipt Date: 20250213
  Transmission Date: 20250409
  Serious: Yes (Other)
  Sender: RANBAXY
  Company Number: NZ-SUN PHARMACEUTICAL INDUSTRIES LTD-2025R1-493281

PATIENT
  Age: 64 Year
  Sex: Male

DRUGS (1)
  1. CINACALCET [Suspect]
     Active Substance: CINACALCET
     Indication: Electrocardiogram QT prolonged
     Route: 065

REACTIONS (1)
  - Torsade de pointes [Unknown]
